FAERS Safety Report 17099928 (Version 1)
Quarter: 2019Q4

REPORT INFORMATION
  Report Type: Spontaneous
  Country: CL (occurrence: CL)
  Receive Date: 20191202
  Receipt Date: 20191202
  Transmission Date: 20200122
  Serious: Yes (Hospitalization)
  Sender: FDA-Public Use
  Company Number: CL-MYLANLABS-2019M1116325

PATIENT
  Age: 21 Year
  Sex: Male

DRUGS (1)
  1. LEPONEX [Suspect]
     Active Substance: CLOZAPINE
     Indication: PRODUCT USED FOR UNKNOWN INDICATION
     Dosage: 500 MILLIGRAM
     Route: 048

REACTIONS (6)
  - Mean cell volume decreased [Recovering/Resolving]
  - Eosinophil count decreased [Unknown]
  - Haematocrit decreased [Recovered/Resolved]
  - Haemoglobin decreased [Recovered/Resolved]
  - Hospitalisation [Unknown]
  - Mean cell haemoglobin decreased [Recovered/Resolved]

NARRATIVE: CASE EVENT DATE: 20040907
